FAERS Safety Report 24086375 (Version 1)
Quarter: 2024Q3

REPORT INFORMATION
  Report Type: Spontaneous
  Country: GR (occurrence: GR)
  Receive Date: 20240712
  Receipt Date: 20240712
  Transmission Date: 20241016
  Serious: No
  Sender: PFIZER
  Company Number: GR-SEATTLE GENETICS-2023SGN12424

PATIENT
  Age: 47 Year
  Sex: Female

DRUGS (7)
  1. TUKYSA [Suspect]
     Active Substance: TUCATINIB
     Indication: HER2 positive breast cancer
     Dosage: UNK
     Route: 065
     Dates: start: 202210
  2. TUKYSA [Suspect]
     Active Substance: TUCATINIB
     Dosage: 200 MG, BID
     Route: 065
     Dates: start: 202212
  3. TUKYSA [Suspect]
     Active Substance: TUCATINIB
     Dosage: 300 MG, BID
     Route: 065
     Dates: start: 202311
  4. TRASTUZUMAB [Suspect]
     Active Substance: TRASTUZUMAB
     Indication: HER2 positive breast cancer
     Dosage: UNK
     Route: 065
     Dates: start: 202210
  5. CAPECITABINE [Suspect]
     Active Substance: CAPECITABINE
     Indication: HER2 positive breast cancer
     Dosage: UNK
     Route: 065
     Dates: start: 202210
  6. CAPECITABINE [Suspect]
     Active Substance: CAPECITABINE
     Dosage: 1000 MG/M2, BID
     Route: 065
     Dates: start: 202212
  7. LOPERAMIDE [Suspect]
     Active Substance: LOPERAMIDE
     Indication: Diarrhoea
     Dosage: UNK
     Route: 065
     Dates: start: 202212

REACTIONS (9)
  - Neoplasm progression [Unknown]
  - Asthenia [Unknown]
  - Dihydropyrimidine dehydrogenase deficiency [Unknown]
  - Diplopia [Recovered/Resolved]
  - Condition aggravated [Recovered/Resolved]
  - Headache [Unknown]
  - Aphthous ulcer [Unknown]
  - Diarrhoea [Unknown]
  - Nausea [Unknown]

NARRATIVE: CASE EVENT DATE: 20221001
